FAERS Safety Report 21334382 (Version 1)
Quarter: 2022Q3

REPORT INFORMATION
  Report Type: Spontaneous
  Country: US (occurrence: None)
  Receive Date: 20220914
  Receipt Date: 20220914
  Transmission Date: 20221027
  Serious: Yes (Disabling, Other)
  Sender: FDA-Public Use
  Company Number: None

PATIENT
  Age: 34 Year
  Sex: Female
  Weight: 63 kg

DRUGS (1)
  1. PROZAC [Suspect]
     Active Substance: FLUOXETINE HYDROCHLORIDE
     Indication: Anxiety
     Dates: start: 20210401, end: 20210820

REACTIONS (6)
  - Sexual dysfunction [None]
  - Drug ineffective [None]
  - Therapy cessation [None]
  - Genital hypoaesthesia [None]
  - Loss of libido [None]
  - Female orgasmic disorder [None]

NARRATIVE: CASE EVENT DATE: 20210820
